FAERS Safety Report 24018669 (Version 1)
Quarter: 2024Q2

REPORT INFORMATION
  Report Type: Spontaneous
  Country: US (occurrence: US)
  Receive Date: 20240627
  Receipt Date: 20240627
  Transmission Date: 20240717
  Serious: Yes (Other)
  Sender: FDA-Public Use
  Company Number: US-STRIDES ARCOLAB LIMITED-2024SP007387

PATIENT
  Age: 53 Year
  Sex: Male

DRUGS (15)
  1. PREDNISOLONE [Suspect]
     Active Substance: PREDNISOLONE
     Indication: Rash erythematous
     Dosage: UNK
     Route: 065
  2. PREDNISOLONE [Suspect]
     Active Substance: PREDNISOLONE
     Indication: Erythema
  3. TRIAMCINOLONE ACETONIDE [Suspect]
     Active Substance: TRIAMCINOLONE ACETONIDE
     Indication: Rash erythematous
     Dosage: UNK
     Route: 065
  4. TRIAMCINOLONE ACETONIDE [Suspect]
     Active Substance: TRIAMCINOLONE ACETONIDE
     Indication: Erythema
  5. METHOTREXATE [Suspect]
     Active Substance: METHOTREXATE
     Indication: Dermatomyositis
     Dosage: 15 MILLIGRAM, ONCE A WEEK
     Route: 065
  6. METHOTREXATE [Suspect]
     Active Substance: METHOTREXATE
     Dosage: 17.5 MILLIGRAM, ONCE A WEEK
     Route: 065
     Dates: end: 202302
  7. CYCLOSPORINE [Suspect]
     Active Substance: CYCLOSPORINE
     Indication: Dermatitis
     Dosage: UNK
     Route: 065
  8. CLOBETASOL [Suspect]
     Active Substance: CLOBETASOL
     Indication: Rash erythematous
     Dosage: UNK
     Route: 065
  9. CLOBETASOL [Suspect]
     Active Substance: CLOBETASOL
     Indication: Erythema
  10. CRISABOROLE [Suspect]
     Active Substance: CRISABOROLE
     Indication: Rash erythematous
     Dosage: UNK
     Route: 065
  11. CRISABOROLE [Suspect]
     Active Substance: CRISABOROLE
     Indication: Erythema
  12. OMALIZUMAB [Suspect]
     Active Substance: OMALIZUMAB
     Indication: Rash erythematous
     Dosage: UNK
     Route: 065
  13. OMALIZUMAB [Suspect]
     Active Substance: OMALIZUMAB
     Indication: Erythema
  14. TOZINAMERAN [Concomitant]
     Active Substance: TOZINAMERAN
     Indication: COVID-19 immunisation
     Dosage: UNK (FIRST DOSE)
     Route: 065
     Dates: start: 2021
  15. TOZINAMERAN [Concomitant]
     Active Substance: TOZINAMERAN
     Dosage: UNK (SECOND DOSE)
     Route: 065
     Dates: start: 202112

REACTIONS (5)
  - Drug ineffective [Unknown]
  - Therapy non-responder [Unknown]
  - Dermatitis [Unknown]
  - Drug intolerance [Unknown]
  - Off label use [Unknown]
